FAERS Safety Report 4885157-0 (Version None)
Quarter: 2005Q4

REPORT INFORMATION
  Report Type: 
  Country: None (occurrence: None)
  Receive Date: 20051201
  Receipt Date: 20050915
  Transmission Date: 20060501
  Serious: No
  Sender: FDA-Public Use
  Company Number: 2005PV002162

PATIENT
  Sex: Male

DRUGS (1)
  1. BYETTA [Suspect]
     Dosage: 5 MCG; BID; SC
     Route: 058
     Dates: start: 20050914

REACTIONS (3)
  - BLOOD GLUCOSE DECREASED [None]
  - FEELING JITTERY [None]
  - PHARYNGOLARYNGEAL PAIN [None]
